FAERS Safety Report 13679913 (Version 1)
Quarter: 2017Q2

REPORT INFORMATION
  Report Type: Report from Study
  Country: UG (occurrence: UG)
  Receive Date: 20170622
  Receipt Date: 20170622
  Transmission Date: 20170830
  Serious: No
  Sender: FDA-Public Use
  Company Number: UG-BIOGEN-2017BV000113

PATIENT
  Weight: 40 kg

DRUGS (3)
  1. ALPROLIX [Suspect]
     Active Substance: EFTRENONACOG ALFA
     Indication: HAEMORRHAGE
     Dosage: FOR PAST FOUR MONTHS
     Route: 042
  2. ALPROLIX [Suspect]
     Active Substance: EFTRENONACOG ALFA
     Indication: PROPHYLAXIS
  3. ALPROLIX [Suspect]
     Active Substance: EFTRENONACOG ALFA
     Indication: PRODUCT USED FOR UNKNOWN INDICATION
     Dosage: 500 IU
     Route: 042
     Dates: start: 201705, end: 201705

REACTIONS (3)
  - Asthenia [Unknown]
  - Body temperature increased [Unknown]
  - Headache [Unknown]

NARRATIVE: CASE EVENT DATE: 201705
